FAERS Safety Report 8199163-4 (Version None)
Quarter: 2012Q1

REPORT INFORMATION
  Report Type: 
  Country: None (occurrence: None)
  Receive Date: 20120309
  Receipt Date: 20120305
  Transmission Date: 20120608
  Serious: No
  Sender: FDA-Public Use
  Company Number: US-PFIZER INC-2012058432

PATIENT
  Age: 45 Year
  Sex: Male
  Weight: 104 kg

DRUGS (2)
  1. MEDROL [Suspect]
     Indication: SINUSITIS
     Dosage: UNK
  2. TESTOSTERONE [Suspect]
     Indication: BLOOD TESTOSTERONE DECREASED
     Dosage: 50 MG,  ONE TUBE DAILY IN THE MORNING
     Route: 061

REACTIONS (3)
  - FATIGUE [None]
  - EPISTAXIS [None]
  - TREMOR [None]
